FAERS Safety Report 12069801 (Version 2)
Quarter: 2016Q1

REPORT INFORMATION
  Report Type: Other
  Country: CO (occurrence: CO)
  Receive Date: 20160211
  Receipt Date: 20160218
  Transmission Date: 20160526
  Serious: Yes (Other)
  Sender: FDA-Public Use
  Company Number: CO-SHIRE-CO201601567

PATIENT
  Age: 16 Year
  Sex: Male
  Weight: 50 kg

DRUGS (4)
  1. VPRIV [Suspect]
     Active Substance: VELAGLUCERASE ALFA
     Dosage: 3200 IU (8 VIALS), OTHER (EVERY 8 DAYS)
     Route: 041
     Dates: start: 20160129
  2. VPRIV [Suspect]
     Active Substance: VELAGLUCERASE ALFA
     Indication: GAUCHER^S DISEASE
     Dosage: 3200 IU (8 VIALS), 1X/2WKS(EVERY 15 DAYS)
     Route: 041
     Dates: start: 201602
  3. METOCLOPRAMIDE. [Concomitant]
     Active Substance: METOCLOPRAMIDE
     Indication: GAUCHER^S DISEASE
     Dosage: 15 GTT, 1X/DAY:QD
     Route: 048
     Dates: start: 20160129
  4. VPRIV [Suspect]
     Active Substance: VELAGLUCERASE ALFA
     Dosage: UNK UNK, UNKNOWN
     Route: 041
     Dates: start: 2008

REACTIONS (4)
  - Bone disorder [Unknown]
  - Inappropriate schedule of drug administration [Not Recovered/Not Resolved]
  - Seizure [Recovered/Resolved]
  - Infusion related reaction [Recovered/Resolved]

NARRATIVE: CASE EVENT DATE: 201510
